FAERS Safety Report 14838145 (Version 1)
Quarter: 2018Q2

REPORT INFORMATION
  Report Type: Spontaneous
  Country: US (occurrence: US)
  Receive Date: 20180502
  Receipt Date: 20180502
  Transmission Date: 20180711
  Serious: Yes (Other)
  Sender: FDA-Public Use
  Company Number: US-ELI_LILLY_AND_COMPANY-US201804009923

PATIENT
  Sex: Female

DRUGS (3)
  1. OLANZAPINE. [Suspect]
     Active Substance: OLANZAPINE
     Indication: TENSION HEADACHE
     Dosage: 10 MG, ONE DOSE ONLY
     Route: 048
     Dates: start: 201610
  2. ZANAFLEX [Concomitant]
     Active Substance: TIZANIDINE HYDROCHLORIDE
     Dosage: UNK, QHS
     Route: 065
  3. INDOMETHACIN                       /00003801/ [Concomitant]
     Active Substance: INDOMETHACIN
     Dosage: UNK, UNKNOWN
     Route: 065

REACTIONS (8)
  - Cranial nerve injury [Not Recovered/Not Resolved]
  - Head injury [Unknown]
  - Loss of consciousness [Unknown]
  - Occipital neuralgia [Not Recovered/Not Resolved]
  - Facial bones fracture [Unknown]
  - Somnolence [Unknown]
  - Concussion [Unknown]
  - Off label use [Unknown]
